FAERS Safety Report 14033603 (Version 8)
Quarter: 2018Q2

REPORT INFORMATION
  Report Type: Report from Study
  Country: JP (occurrence: JP)
  Receive Date: 20171003
  Receipt Date: 20180423
  Transmission Date: 20180711
  Serious: Yes (Death, Hospitalization, Other)
  Sender: FDA-Public Use
  Company Number: JP-BRISTOL-MYERS SQUIBB COMPANY-BMS-2017-087824

PATIENT
  Age: 62 Year
  Sex: Female
  Weight: 51.7 kg

DRUGS (17)
  1. OXINORM                            /00045603/ [Suspect]
     Active Substance: OXYCODONE HYDROCHLORIDE
     Indication: PRODUCT USED FOR UNKNOWN INDICATION
     Dosage: 2.5 MG, PRN
     Route: 065
     Dates: start: 20160704, end: 20161025
  2. NEXIUM [Concomitant]
     Active Substance: ESOMEPRAZOLE MAGNESIUM
     Indication: PROPHYLAXIS
     Dosage: 20 MG, QD
     Route: 065
     Dates: start: 20160710, end: 20160914
  3. ERYTHROCIN                         /00020904/ [Concomitant]
     Active Substance: ERYTHROMYCIN ETHYLSUCCINATE
     Indication: PROPHYLAXIS
     Dosage: 400 MG, UNK
     Route: 048
     Dates: start: 20160927, end: 20161001
  4. FAMOTIDINE. [Concomitant]
     Active Substance: FAMOTIDINE
     Indication: PROPHYLAXIS
     Dosage: 20 MG, BID
     Route: 048
     Dates: start: 20160928, end: 20161024
  5. OXYCONTIN [Suspect]
     Active Substance: OXYCODONE HYDROCHLORIDE
     Indication: BONE PAIN
     Dosage: 15 MG, BID
     Route: 048
     Dates: start: 20160704, end: 20161025
  6. OXINORM                            /00045603/ [Suspect]
     Active Substance: OXYCODONE HYDROCHLORIDE
     Indication: BONE PAIN
     Dosage: 5 MG, PRN
     Route: 048
     Dates: start: 20160704, end: 20161025
  7. IPILIMUMAB [Suspect]
     Active Substance: IPILIMUMAB
     Indication: MALIGNANT MELANOMA STAGE IV
     Dosage: 3 MG/KG, UNK
     Route: 041
     Dates: start: 20160822, end: 20160822
  8. OLANZAPINE. [Concomitant]
     Active Substance: OLANZAPINE
     Indication: PAIN
     Dosage: 5 MG, QD
     Route: 048
     Dates: start: 20160921, end: 20161105
  9. IPILIMUMAB [Suspect]
     Active Substance: IPILIMUMAB
     Indication: PRODUCT USED FOR UNKNOWN INDICATION
     Dosage: 3 MG/KG, UNK
     Route: 041
     Dates: start: 20161004, end: 20161004
  10. MAGMITT [Concomitant]
     Active Substance: MAGNESIUM OXIDE
     Indication: PROPHYLAXIS
     Dosage: 660 MG, TID
     Route: 048
     Dates: start: 20160709, end: 20161106
  11. URSO [Concomitant]
     Active Substance: URSODIOL
     Indication: LIVER DISORDER
     Dosage: 200 MG, TID
     Route: 048
     Dates: start: 20160908, end: 20161024
  12. NIVOLUMAB [Suspect]
     Active Substance: NIVOLUMAB
     Indication: MALIGNANT MELANOMA
     Dosage: UNK
     Route: 065
     Dates: start: 201604, end: 201608
  13. PREDONINE [Concomitant]
     Active Substance: PREDNISOLONE
     Indication: PROPHYLAXIS
     Dosage: 10 MG, QD
     Route: 048
     Dates: start: 20160822, end: 20161025
  14. NOVAMIN                            /00013304/ [Concomitant]
     Active Substance: PROCHLORPERAZINE MALEATE
     Indication: PRODUCT USED FOR UNKNOWN INDICATION
     Dosage: 5 MG, TID
     Route: 048
     Dates: start: 20160709, end: 20161012
  15. NAIXAN                             /00256201/ [Concomitant]
     Active Substance: NAPROXEN
     Indication: PYREXIA
     Dosage: 100 MG, TID
     Route: 048
     Dates: start: 20160910, end: 20161105
  16. NAIXAN                             /00256201/ [Concomitant]
     Active Substance: NAPROXEN
     Indication: PROPHYLAXIS
     Route: 065
  17. SENNOSIDE A+B [Concomitant]
     Active Substance: SENNOSIDES A AND B
     Indication: PROPHYLAXIS
     Dosage: 24 MG, QD
     Route: 048
     Dates: start: 20160831, end: 20160901

REACTIONS (7)
  - Pyrexia [Recovered/Resolved]
  - Rash [Recovered/Resolved]
  - Disseminated intravascular coagulation [Recovered/Resolved]
  - Constipation [Unknown]
  - Malignant neoplasm progression [Fatal]
  - Hepatic enzyme increased [Not Recovered/Not Resolved]
  - Diarrhoea [Unknown]

NARRATIVE: CASE EVENT DATE: 20160822
